FAERS Safety Report 9995719 (Version 1)
Quarter: 2014Q1

REPORT INFORMATION
  Report Type: Spontaneous
  Country: US (occurrence: None)
  Receive Date: 20140310
  Receipt Date: 20140310
  Transmission Date: 20141002
  Serious: Yes (Death)
  Sender: FDA-Public Use
  Company Number: None

PATIENT
  Sex: Male

DRUGS (2)
  1. TEMOZOLOMIDE 180MG CAPSULE [Suspect]
     Dosage: TAKE 360MG DAILY, BY MOUTH FOR 5 DAYS ON DAYS 9-14
     Dates: start: 20131209
  2. XELODA 500 MG TABLETS ROCHE PHARMACEUTICALS [Suspect]
     Dosage: 3 TABS 2X DAILY, BY MOUTH 2X DAILY X 14 DAYS, OFF 7 DAYS
     Route: 048

REACTIONS (1)
  - Death [None]
